FAERS Safety Report 12159109 (Version 4)
Quarter: 2016Q3

REPORT INFORMATION
  Report Type: Spontaneous
  Country: US (occurrence: US)
  Receive Date: 20160308
  Receipt Date: 20160726
  Transmission Date: 20161109
  Serious: Yes (Hospitalization)
  Sender: FDA-Public Use
  Company Number: US-UNITED THERAPEUTICS-UNT-2016-003299

PATIENT
  Age: 77 Year
  Sex: Female
  Weight: 61.68 kg

DRUGS (5)
  1. REMODULIN [Suspect]
     Active Substance: TREPROSTINIL
     Dosage: 0.018 ?G/KG, CONTINUING
     Route: 058
  2. REMODULIN [Suspect]
     Active Substance: TREPROSTINIL
     Indication: PULMONARY HYPERTENSION
     Dosage: 0.012 ?G/KG, CONTINUING
     Route: 058
     Dates: start: 20151123
  3. REMODULIN [Suspect]
     Active Substance: TREPROSTINIL
     Dosage: 0.022 ?G/KG, CONTINUING
     Route: 058
  4. TRACLEER [Concomitant]
     Active Substance: BOSENTAN
     Indication: PRODUCT USED FOR UNKNOWN INDICATION
  5. REVATIO [Concomitant]
     Active Substance: SILDENAFIL CITRATE
     Indication: PRODUCT USED FOR UNKNOWN INDICATION

REACTIONS (18)
  - Therapy cessation [Unknown]
  - Asthenia [Unknown]
  - Device infusion issue [Unknown]
  - Oedema peripheral [Unknown]
  - Vomiting [Unknown]
  - Face oedema [Unknown]
  - Hypoxia [Unknown]
  - Dizziness [Unknown]
  - Anxiety [Unknown]
  - Drug dose omission [Unknown]
  - Nausea [Unknown]
  - Overdose [Unknown]
  - Hypotension [Unknown]
  - Infusion site reaction [Unknown]
  - Erythema [Unknown]
  - Device leakage [Unknown]
  - Infusion site erythema [Unknown]
  - Headache [Unknown]

NARRATIVE: CASE EVENT DATE: 201602
